FAERS Safety Report 21652974 (Version 1)
Quarter: 2022Q4

REPORT INFORMATION
  Report Type: Spontaneous
  Country: US (occurrence: None)
  Receive Date: 20221125
  Receipt Date: 20221125
  Transmission Date: 20230113
  Serious: Yes (Hospitalization)
  Sender: FDA-Public Use
  Company Number: None

PATIENT
  Age: 69 Year
  Sex: Female

DRUGS (10)
  1. HYQVIA [Suspect]
     Active Substance: HUMAN IMMUNOGLOBULIN G\HYALURONIDASE RECOMBINANT HUMAN
     Indication: Hypogammaglobulinaemia
     Dosage: 2.5 GM/25ML SUBCUTANEOUS??**WEEK ONE DOSE** PUSH 3.75 ML HY INTO SUB-Q SET AT 1 TO 2 ML PER MINUTE.
     Route: 058
     Dates: start: 20221104
  2. HYQVIA [Suspect]
     Active Substance: HUMAN IMMUNOGLOBULIN G\HYALURONIDASE RECOMBINANT HUMAN
     Indication: Hypogammaglobulinaemia
     Dosage: **WEEK ONE DOSE** PUSH 3.75 ML HY INTO SUB-Q SET AT 1 TO 2 ML PER MINUTE. THEN INFUSE 7 GM (70 ML)
  3. ACETAMINOPHEN [Concomitant]
  4. AJOVY INJ [Concomitant]
  5. DIPHENHYDRAMINE [Concomitant]
     Active Substance: DIPHENHYDRAMINE
  6. EPINEPHRINE [Concomitant]
     Active Substance: EPINEPHRINE
  7. LEVOTHYROIN [Concomitant]
  8. LIDOCAINE/PRILOCAINE CRE [Concomitant]
  9. PNEUMOVAX [Concomitant]
  10. UBRELVY [Concomitant]

REACTIONS (1)
  - Pneumonia [None]

NARRATIVE: CASE EVENT DATE: 20221120
